FAERS Safety Report 13407666 (Version 1)
Quarter: 2017Q2

REPORT INFORMATION
  Report Type: Spontaneous
  Country: NO (occurrence: NO)
  Receive Date: 20170406
  Receipt Date: 20170406
  Transmission Date: 20170830
  Serious: Yes (Other)
  Sender: FDA-Public Use
  Company Number: NO-BIOGEN-2017BI00383329

PATIENT
  Age: 42 Year
  Sex: Male

DRUGS (10)
  1. METOPROLOL TARTRATE. [Concomitant]
     Active Substance: METOPROLOL TARTRATE
     Indication: AORTIC DISSECTION
  2. AVONEX [Suspect]
     Active Substance: INTERFERON BETA-1A
     Indication: MULTIPLE SCLEROSIS
     Route: 065
     Dates: start: 2012, end: 201406
  3. MAREVAN [Concomitant]
     Active Substance: WARFARIN SODIUM
     Indication: HEART VALVE REPLACEMENT
     Dosage: 42 TABLETS OF 2.5 MG PER WEEK (DEVIDED OVER SEVEN DAYS)
     Route: 048
     Dates: start: 201401
  4. LOSARTAN. [Concomitant]
     Active Substance: LOSARTAN
     Indication: AORTIC DISSECTION
  5. METOPROLOL TARTRATE. [Concomitant]
     Active Substance: METOPROLOL TARTRATE
     Indication: HYPERTENSION
     Route: 048
     Dates: start: 201401
  6. WARFARIN [Concomitant]
     Active Substance: WARFARIN
     Indication: HYPERTENSION
     Route: 048
     Dates: start: 201401
  7. LOSARTAN. [Concomitant]
     Active Substance: LOSARTAN
     Indication: HYPERTENSION
     Route: 065
  8. NIFEDIPINE. [Concomitant]
     Active Substance: NIFEDIPINE
     Indication: AORTIC DISSECTION
     Route: 048
     Dates: start: 2016
  9. MAREVAN [Concomitant]
     Active Substance: WARFARIN SODIUM
     Indication: AORTIC DISSECTION
  10. WARFARIN [Concomitant]
     Active Substance: WARFARIN
     Indication: AORTIC DISSECTION

REACTIONS (3)
  - Serum ferritin increased [Not Recovered/Not Resolved]
  - Aortic dissection [Unknown]
  - International normalised ratio fluctuation [Unknown]

NARRATIVE: CASE EVENT DATE: 201401
